FAERS Safety Report 7441785-X (Version None)
Quarter: 2011Q2

REPORT INFORMATION
  Report Type: 
  Country: None (occurrence: None)
  Receive Date: 20110428
  Receipt Date: 20110425
  Transmission Date: 20111010
  Serious: Yes (Death, Other)
  Sender: FDA-Public Use
  Company Number: US-PFIZER INC-2011074305

PATIENT
  Age: 24 Year
  Sex: Male

DRUGS (2)
  1. OXYCODONE [Suspect]
  2. XANAX [Suspect]

REACTIONS (4)
  - PULMONARY OEDEMA [None]
  - ACCIDENTAL OVERDOSE [None]
  - PULMONARY CONGESTION [None]
  - TOXICITY TO VARIOUS AGENTS [None]
